FAERS Safety Report 21432661 (Version 1)
Quarter: 2022Q4

REPORT INFORMATION
  Report Type: Spontaneous
  Country: US (occurrence: US)
  Receive Date: 20221010
  Receipt Date: 20221010
  Transmission Date: 20230113
  Serious: Yes (Hospitalization)
  Sender: FDA-Public Use
  Company Number: US-STRIDES ARCOLAB LIMITED-2022SP006902

PATIENT
  Age: 78 Year
  Sex: Male

DRUGS (8)
  1. OLANZAPINE [Suspect]
     Active Substance: OLANZAPINE
     Indication: Dementia with Lewy bodies
     Dosage: UNK
     Route: 065
  2. BUSPIRONE HYDROCHLORIDE [Suspect]
     Active Substance: BUSPIRONE HYDROCHLORIDE
     Indication: Dementia with Lewy bodies
     Dosage: UNK
     Route: 065
  3. ZOLPIDEM [Suspect]
     Active Substance: ZOLPIDEM TARTRATE
     Indication: Dementia with Lewy bodies
     Dosage: UNK
     Route: 065
  4. DONEPEZIL [Suspect]
     Active Substance: DONEPEZIL
     Indication: Dementia with Lewy bodies
     Dosage: UNK
     Route: 065
  5. QUETIAPINE [Suspect]
     Active Substance: QUETIAPINE
     Indication: Dementia with Lewy bodies
     Dosage: UNK
     Route: 065
  6. MIRTAZAPINE [Suspect]
     Active Substance: MIRTAZAPINE
     Indication: Dementia with Lewy bodies
     Dosage: UNK
     Route: 065
  7. LORAZEPAM [Suspect]
     Active Substance: LORAZEPAM
     Indication: Dementia with Lewy bodies
     Dosage: UNK
     Route: 065
  8. RIVASTIGMINE [Suspect]
     Active Substance: RIVASTIGMINE
     Indication: Dementia with Lewy bodies
     Dosage: UNK
     Route: 065

REACTIONS (4)
  - Treatment failure [Unknown]
  - Adverse drug reaction [Unknown]
  - Drug intolerance [Unknown]
  - Off label use [Unknown]
